FAERS Safety Report 5780023-0 (Version None)
Quarter: 2008Q2

REPORT INFORMATION
  Report Type: 
  Country: None (occurrence: None)
  Receive Date: 20080620
  Receipt Date: 20080617
  Transmission Date: 20081010
  Serious: Yes (Other)
  Sender: FDA-Public Use
  Company Number: FR-BRISTOL-MYERS SQUIBB COMPANY-14232078

PATIENT
  Age: 60 Year
  Sex: Male

DRUGS (3)
  1. MUCOMYSTENDO [Suspect]
     Route: 055
  2. NETROMYCIN [Suspect]
     Route: 055
  3. BECLOSPIN [Suspect]
     Route: 055

REACTIONS (3)
  - ANXIETY [None]
  - DYSPNOEA [None]
  - MALAISE [None]
